FAERS Safety Report 22090838 (Version 2)
Quarter: 2023Q1

REPORT INFORMATION
  Report Type: Spontaneous
  Country: DE (occurrence: DE)
  Receive Date: 20230313
  Receipt Date: 20230323
  Transmission Date: 20230418
  Serious: Yes (Other)
  Sender: FDA-Public Use
  Company Number: DE-BAUSCHBL-2023BNL001959

PATIENT
  Age: 84 Year
  Sex: Male

DRUGS (4)
  1. DEXA EDO [Suspect]
     Active Substance: DEXAMETHASONE SODIUM PHOSPHATE
     Indication: Preoperative care
     Dosage: 5 TIMES DAILY
     Dates: start: 202211
  2. DEXA EDO [Suspect]
     Active Substance: DEXAMETHASONE SODIUM PHOSPHATE
     Dosage: 4 TIMES DAILY
     Route: 047
     Dates: start: 20230201
  3. DEXA EDO [Suspect]
     Active Substance: DEXAMETHASONE SODIUM PHOSPHATE
     Dosage: 2 TIMES DAILY
     Route: 047
     Dates: start: 20230309, end: 20230315
  4. DEXA EDO [Suspect]
     Active Substance: DEXAMETHASONE SODIUM PHOSPHATE
     Route: 047
     Dates: start: 20230315

REACTIONS (8)
  - Corneal opacity [Unknown]
  - Injury corneal [Unknown]
  - Instillation site erythema [Unknown]
  - Instillation site lacrimation [Recovered/Resolved]
  - Instillation site pruritus [Recovered/Resolved]
  - Eyelid ptosis [Recovering/Resolving]
  - Vision blurred [Recovering/Resolving]
  - Instillation site irritation [Unknown]

NARRATIVE: CASE EVENT DATE: 20230223
